FAERS Safety Report 8428710-X (Version None)
Quarter: 2012Q2

REPORT INFORMATION
  Report Type: 
  Country: None (occurrence: None)
  Receive Date: 20120606
  Receipt Date: 20120525
  Transmission Date: 20120825
  Serious: Yes (Other)
  Sender: FDA-Public Use
  Company Number: AUR-APL-2009-00334

PATIENT
  Age: 53 Year
  Sex: Male

DRUGS (1)
  1. RISPERIDONE [Suspect]
     Indication: SCHIZOPHRENIA
     Dosage: 6 MG, 1 D; 8 MG, 1 D; 3 MG, 1D

REACTIONS (4)
  - TREMOR [None]
  - GLUCOSE TOLERANCE TEST ABNORMAL [None]
  - PALPITATIONS [None]
  - HYPOGLYCAEMIA [None]
